FAERS Safety Report 5625985-7 (Version None)
Quarter: 2008Q1

REPORT INFORMATION
  Report Type: 
  Country: None (occurrence: None)
  Receive Date: 20080214
  Receipt Date: 20080208
  Transmission Date: 20080703
  Serious: Yes (Other)
  Sender: FDA-Public Use
  Company Number: PHNU2008DE00893

PATIENT
  Sex: Female
  Weight: 78 kg

DRUGS (7)
  1. AREDIA [Suspect]
     Indication: METASTASES TO BONE
     Dosage: 90 MG, QMO
     Route: 042
     Dates: start: 20010701, end: 20021001
  2. ZOMETA [Suspect]
     Indication: METASTASES TO BONE
     Dosage: 4 MG, TIW
     Route: 042
     Dates: start: 20021101, end: 20050201
  3. ZOMETA [Suspect]
     Dosage: 3.5 MG, TIW
     Route: 042
     Dates: start: 20050301, end: 20050701
  4. BONDRONAT [Concomitant]
     Dosage: 4 MG, TIW
     Route: 042
     Dates: start: 20050801
  5. PACLITAXEL [Concomitant]
     Indication: BREAST CANCER
     Dosage: 90 MG/M2, UNK
     Route: 065
     Dates: start: 20010601, end: 20011101
  6. TRASTUZUMAB [Concomitant]
     Indication: BREAST CANCER
     Dosage: 2 MG/KG, UNK
     Route: 065
     Dates: start: 20010601
  7. DEXAMETHASONE TAB [Concomitant]
     Route: 065
     Dates: start: 20010601, end: 20011101

REACTIONS (5)
  - BACTERIAL INFECTION [None]
  - BIOPSY SITE UNSPECIFIED ABNORMAL [None]
  - JAW OPERATION [None]
  - OSTEOMYELITIS [None]
  - OSTEONECROSIS [None]
